FAERS Safety Report 10146638 (Version 1)
Quarter: 2014Q2

REPORT INFORMATION
  Report Type: Spontaneous
  Country: US (occurrence: None)
  Receive Date: 20140430
  Receipt Date: 20140430
  Transmission Date: 20141212
  Serious: Yes (Hospitalization)
  Sender: FDA-Public Use
  Company Number: None

PATIENT
  Age: 45 Year
  Sex: Male

DRUGS (16)
  1. SIMVASTATIN [Suspect]
     Indication: HYPERLIPIDAEMIA
     Route: 048
     Dates: end: 20140127
  2. AMOXICILLIN [Concomitant]
  3. ASA [Concomitant]
  4. CYCLOSPORINE [Concomitant]
  5. FERROUS SULFATE [Concomitant]
  6. METOPROLOL TARTRATE [Concomitant]
  7. MULTIVITAMIN [Concomitant]
  8. PREDNISONE [Concomitant]
  9. SERTRALINE [Concomitant]
  10. SEVELAMER [Concomitant]
  11. CITRIC ACID SODIUM CITRATE [Concomitant]
  12. CALCIUM CARBONATE [Concomitant]
  13. DOCUSATE [Concomitant]
  14. SENNA [Concomitant]
  15. WARFARIN [Concomitant]
  16. RAPAMUNE [Concomitant]

REACTIONS (3)
  - Rhabdomyolysis [None]
  - Renal failure acute [None]
  - International normalised ratio increased [None]
